FAERS Safety Report 8583636-6 (Version None)
Quarter: 2012Q3

REPORT INFORMATION
  Report Type: 
  Country: None (occurrence: None)
  Receive Date: 20120809
  Receipt Date: 20120615
  Transmission Date: 20120928
  Serious: Yes (Other)
  Sender: FDA-Public Use
  Company Number: GB-009507513-2012SP033362

PATIENT

DRUGS (1)
  1. IMPLANON [Suspect]
     Dosage: UNK UNK, UNKNOWN
     Dates: start: 20100901

REACTIONS (2)
  - DEVICE DISLOCATION [None]
  - PREGNANCY WITH IMPLANT CONTRACEPTIVE [None]
